FAERS Safety Report 6959608-1 (Version None)
Quarter: 2010Q3

REPORT INFORMATION
  Report Type: 
  Country: None (occurrence: None)
  Receive Date: 20100830
  Receipt Date: 20100813
  Transmission Date: 20110219
  Serious: Yes (Other)
  Sender: FDA-Public Use
  Company Number: ACO_01807_2010

PATIENT
  Sex: Female
  Weight: 56.6996 kg

DRUGS (12)
  1. AMPYRA [Suspect]
     Indication: ENERGY INCREASED
     Dosage: (10 MG QD ORAL)
     Route: 048
     Dates: start: 20100701, end: 20100701
  2. RITALIN [Suspect]
     Indication: NARCOLEPSY
     Dosage: (20 MG)
  3. OXAPROZIN [Concomitant]
  4. CYTOTEC [Concomitant]
  5. DITROPAN [Concomitant]
  6. SIMVASTATIN [Concomitant]
  7. BACLOFEN [Concomitant]
  8. COPAXONE /03175301/ [Concomitant]
  9. FIORICET [Concomitant]
  10. CITRACAL [Concomitant]
  11. MULTI-VITAMINS [Concomitant]
  12. DHEA [Concomitant]

REACTIONS (1)
  - POTENTIATING DRUG INTERACTION [None]
